FAERS Safety Report 6889585-3 (Version None)
Quarter: 2010Q3

REPORT INFORMATION
  Report Type: 
  Country: None (occurrence: None)
  Receive Date: 20100730
  Receipt Date: 20080314
  Transmission Date: 20110219
  Serious: No
  Sender: FDA-Public Use
  Company Number: US-PFIZER INC-2008015174

PATIENT
  Age: 62 Year
  Sex: Female
  Weight: 68.04 kg

DRUGS (7)
  1. LIPITOR [Suspect]
     Indication: METABOLIC SYNDROME
     Route: 048
     Dates: start: 20050406
  2. FIORICET [Concomitant]
     Indication: HEADACHE
     Route: 048
  3. HYDROCHLOROTHIAZIDE [Concomitant]
     Route: 048
  4. ZOLPIDEM TARTRATE [Concomitant]
  5. KLONOPIN [Concomitant]
  6. METFORMIN HCL [Concomitant]
     Dosage: 850; 2550
  7. BENICAR [Concomitant]
     Dosage: 20/12.5

REACTIONS (2)
  - COUNTERFEIT DRUG ADMINISTERED [None]
  - LABORATORY TEST ABNORMAL [None]
